FAERS Safety Report 10746975 (Version 10)
Quarter: 2015Q2

REPORT INFORMATION
  Report Type: Report from Study
  Country: FI (occurrence: FI)
  Receive Date: 20150129
  Receipt Date: 20150422
  Transmission Date: 20150821
  Serious: Yes (Hospitalization, Other)
  Sender: FDA-Public Use
  Company Number: FI-ROCHE-1525472

PATIENT
  Age: 66 Year
  Sex: Male
  Weight: 98 kg

DRUGS (48)
  1. CYCLOPHOSPHAMIDE. [Suspect]
     Active Substance: CYCLOPHOSPHAMIDE
     Dosage: C1D3?LAST DOSE PRIOR TO EVENTS
     Route: 048
     Dates: start: 20150116, end: 20150116
  2. CYCLOPHOSPHAMIDE. [Suspect]
     Active Substance: CYCLOPHOSPHAMIDE
     Dosage: C2D2
     Route: 048
     Dates: start: 20150225, end: 20150225
  3. SOLU-MEDROL [Concomitant]
     Active Substance: METHYLPREDNISOLONE SODIUM SUCCINATE
     Route: 042
     Dates: start: 20150128, end: 20150128
  4. PETIDIN [Concomitant]
     Route: 042
     Dates: start: 20150114, end: 20150114
  5. THYROXIN [Concomitant]
     Active Substance: LEVOTHYROXINE
     Indication: HYPOTHYROIDISM
     Dosage: 2 TBL TWICE A WEEK, 1 TBL 5 DAYS IN WEEK
     Route: 048
     Dates: start: 20130902
  6. SOLU-MEDROL [Concomitant]
     Active Substance: METHYLPREDNISOLONE SODIUM SUCCINATE
     Dosage: TREATMENT FOR ADVERSE EVENT 1.
     Route: 042
     Dates: start: 20150114, end: 20150114
  7. OBINUTUZUMAB [Suspect]
     Active Substance: OBINUTUZUMAB
     Indication: CHRONIC LYMPHOCYTIC LEUKAEMIA
     Dosage: C1D1?REDUCED INFUSION RATE FOR INFUSION RELATED REACTION.?FREQUENCY: ON DAY 1,2,8 AND 15 OF CYCLE 1
     Route: 041
     Dates: start: 20150114, end: 20150114
  8. OBINUTUZUMAB [Suspect]
     Active Substance: OBINUTUZUMAB
     Dosage: C1D8?DELAYED DUE TO FEBRILE NEUTROPENIA
     Route: 041
     Dates: start: 20150128, end: 20150128
  9. OBINUTUZUMAB [Suspect]
     Active Substance: OBINUTUZUMAB
     Dosage: C2D1?LAST DOSE PRIOR TO NEUTROPENIA SECOND EPISODE.
     Route: 041
     Dates: start: 20150224, end: 20150224
  10. FLUDARABINE [Suspect]
     Active Substance: FLUDARABINE PHOSPHATE
     Dosage: C2D2
     Route: 048
     Dates: start: 20150225, end: 20150225
  11. THYROXIN [Concomitant]
     Active Substance: LEVOTHYROXINE
     Route: 065
     Dates: start: 20130711
  12. SOLU-MEDROL [Concomitant]
     Active Substance: METHYLPREDNISOLONE SODIUM SUCCINATE
     Route: 042
     Dates: start: 20150224, end: 20150224
  13. HISTEC [Concomitant]
     Route: 048
     Dates: start: 20150204, end: 20150204
  14. VALTREX [Concomitant]
     Active Substance: VALACYCLOVIR HYDROCHLORIDE
     Indication: PROPHYLAXIS
     Route: 048
     Dates: start: 20150109
  15. CYCLOPHOSPHAMIDE. [Suspect]
     Active Substance: CYCLOPHOSPHAMIDE
     Dosage: C1D2
     Route: 048
     Dates: start: 20150115, end: 20150115
  16. FLUDARABINE [Suspect]
     Active Substance: FLUDARABINE PHOSPHATE
     Dosage: C1D2
     Route: 048
     Dates: start: 20150115, end: 20150115
  17. SOMAC [Concomitant]
     Active Substance: PANTOPRAZOLE SODIUM
     Indication: GASTROOESOPHAGEAL REFLUX DISEASE
     Route: 048
     Dates: start: 20110819
  18. APURIN [Concomitant]
     Active Substance: ALLOPURINOL
     Route: 048
     Dates: start: 20150113
  19. OBINUTUZUMAB [Suspect]
     Active Substance: OBINUTUZUMAB
     Dosage: C1D15
     Route: 041
     Dates: start: 20150204, end: 20150204
  20. CYCLOPHOSPHAMIDE. [Suspect]
     Active Substance: CYCLOPHOSPHAMIDE
     Indication: CHRONIC LYMPHOCYTIC LEUKAEMIA
     Dosage: C1D1
     Route: 048
     Dates: start: 20150114, end: 20150114
  21. FLUDARABINE [Suspect]
     Active Substance: FLUDARABINE PHOSPHATE
     Dosage: C1D3?LAST DOSE PRIOR TO EVENTS
     Route: 048
     Dates: start: 20150116, end: 20150116
  22. SOLU-MEDROL [Concomitant]
     Active Substance: METHYLPREDNISOLONE SODIUM SUCCINATE
     Route: 042
     Dates: start: 20150115, end: 20150115
  23. HISTEC [Concomitant]
     Route: 048
     Dates: start: 20150115, end: 20150115
  24. HISTEC [Concomitant]
     Route: 048
     Dates: start: 20150128, end: 20150128
  25. COTRIM D.S. [Concomitant]
     Active Substance: SULFAMETHOXAZOLE\TRIMETHOPRIM
     Indication: PROPHYLAXIS
     Dosage: STRENGTH: 100/80MG
     Route: 048
     Dates: start: 20150114
  26. OBINUTUZUMAB [Suspect]
     Active Substance: OBINUTUZUMAB
     Dosage: C1D2?LAST DOSE PRIOR TO EVENTS
     Route: 041
     Dates: start: 20150115, end: 20150115
  27. SOLU-MEDROL [Concomitant]
     Active Substance: METHYLPREDNISOLONE SODIUM SUCCINATE
     Route: 042
     Dates: start: 20150204, end: 20150204
  28. SOLU-MEDROL [Concomitant]
     Active Substance: METHYLPREDNISOLONE SODIUM SUCCINATE
     Route: 042
     Dates: start: 20150331, end: 20150331
  29. PARATABS [Concomitant]
     Route: 048
     Dates: start: 20150224, end: 20150224
  30. PARATABS [Concomitant]
     Route: 048
     Dates: start: 20150204, end: 20150204
  31. HISTEC [Concomitant]
     Indication: PROPHYLAXIS
     Route: 048
     Dates: start: 20150114, end: 20150114
  32. ONDANSETRON [Concomitant]
     Active Substance: ONDANSETRON
     Route: 042
     Dates: start: 20150114, end: 20150114
  33. COTRIM D.S. [Concomitant]
     Active Substance: SULFAMETHOXAZOLE\TRIMETHOPRIM
     Dosage: 160/800MG
     Route: 065
     Dates: start: 20140901
  34. PARATABS [Concomitant]
     Indication: PROPHYLAXIS
     Route: 048
     Dates: start: 20150114, end: 20150114
  35. PARATABS [Concomitant]
     Route: 048
     Dates: start: 20150128, end: 20150128
  36. HISTEC [Concomitant]
     Route: 048
     Dates: start: 20150224, end: 20150224
  37. HISTEC [Concomitant]
     Route: 048
     Dates: start: 20150331, end: 20150331
  38. PERFALGAN [Concomitant]
     Active Substance: ACETAMINOPHEN
     Route: 042
     Dates: start: 20150114, end: 20150114
  39. VALTREX [Concomitant]
     Active Substance: VALACYCLOVIR HYDROCHLORIDE
     Route: 065
     Dates: start: 20140901
  40. CYCLOPHOSPHAMIDE. [Suspect]
     Active Substance: CYCLOPHOSPHAMIDE
     Dosage: C2D1
     Route: 048
     Dates: start: 20150224, end: 20150224
  41. CYCLOPHOSPHAMIDE. [Suspect]
     Active Substance: CYCLOPHOSPHAMIDE
     Dosage: C2D3?LAST DOSE PRIOR TO NEUTROPENIA SECOND EPISODE.
     Route: 048
     Dates: start: 20150226, end: 20150226
  42. FLUDARABINE [Suspect]
     Active Substance: FLUDARABINE PHOSPHATE
     Indication: CHRONIC LYMPHOCYTIC LEUKAEMIA
     Dosage: C1D1
     Route: 048
     Dates: start: 20150114, end: 20150114
  43. FLUDARABINE [Suspect]
     Active Substance: FLUDARABINE PHOSPHATE
     Dosage: C2D1
     Route: 048
     Dates: start: 20150224, end: 20150224
  44. FLUDARABINE [Suspect]
     Active Substance: FLUDARABINE PHOSPHATE
     Dosage: C2D3?LAST DOSE PRIOR TO NEUTROPENIA 2ND EPISODE.
     Route: 048
     Dates: start: 20150226, end: 20150226
  45. SOLU-MEDROL [Concomitant]
     Active Substance: METHYLPREDNISOLONE SODIUM SUCCINATE
     Indication: PROPHYLAXIS
     Route: 042
     Dates: start: 20150114, end: 20150114
  46. PARATABS [Concomitant]
     Route: 048
     Dates: start: 20150331, end: 20150331
  47. TAVEGYL [Concomitant]
     Active Substance: CLEMASTINE FUMARATE
     Route: 042
     Dates: start: 20150114, end: 20150114
  48. PANADOL (FINLAND) [Concomitant]
     Indication: PROPHYLAXIS
     Route: 048
     Dates: start: 20150115, end: 20150115

REACTIONS (2)
  - Febrile neutropenia [Recovered/Resolved]
  - Neutropenia [Recovered/Resolved]

NARRATIVE: CASE EVENT DATE: 20150120
